FAERS Safety Report 9897508 (Version 3)
Quarter: 2014Q4

REPORT INFORMATION
  Report Type: Spontaneous
  Country: US (occurrence: US)
  Receive Date: 20140214
  Receipt Date: 20141208
  Transmission Date: 20150529
  Serious: Yes (Hospitalization, Other)
  Sender: FDA-Public Use
  Company Number: US-BAYER-2014-023577

PATIENT
  Age: 31 Year
  Sex: Female
  Weight: 72.56 kg

DRUGS (4)
  1. ORTHO TRICYCLEN [Concomitant]
  2. SYNTHROID [Concomitant]
     Active Substance: LEVOTHYROXINE SODIUM
     Indication: THYROID DISORDER
     Dosage: UNK
     Route: 048
     Dates: start: 2008, end: 2013
  3. CELEXA [Concomitant]
     Active Substance: CITALOPRAM HYDROBROMIDE
     Indication: DEPRESSION
     Dosage: UNK
     Route: 048
     Dates: start: 2012, end: 2014
  4. MIRENA [Suspect]
     Active Substance: LEVONORGESTREL
     Indication: CONTRACEPTION
     Dosage: 20 MCG/24HR, CONT
     Route: 015
     Dates: start: 20050413, end: 20130501

REACTIONS (9)
  - Injury [None]
  - Device dislocation [None]
  - Device misuse [None]
  - Scar [None]
  - Uterine perforation [None]
  - Pain [None]
  - Procedural pain [None]
  - Device failure [None]
  - Medical device discomfort [None]

NARRATIVE: CASE EVENT DATE: 20130501
